FAERS Safety Report 18238363 (Version 1)
Quarter: 2020Q3

REPORT INFORMATION
  Report Type: Report from Study
  Country: US (occurrence: US)
  Receive Date: 20200907
  Receipt Date: 20200907
  Transmission Date: 20201103
  Serious: Yes (Hospitalization)
  Sender: FDA-Public Use
  Company Number: US-BAUSCH-BL-2020-025494

PATIENT
  Age: 79 Year
  Sex: Female
  Weight: 76.27 kg

DRUGS (8)
  1. XIFAXAN [Suspect]
     Active Substance: RIFAXIMIN
     Dosage: ABOUT 6 MONTHS AGO; CONTINUOUSLY
     Route: 048
     Dates: start: 202003
  2. FUROSEMIDE. [Suspect]
     Active Substance: FUROSEMIDE
     Indication: FLUID RETENTION
  3. SPIRONOLACTONE. [Concomitant]
     Active Substance: SPIRONOLACTONE
     Indication: PRODUCT USED FOR UNKNOWN INDICATION
  4. FUROSEMIDE. [Suspect]
     Active Substance: FUROSEMIDE
     Indication: ASCITES
     Route: 065
     Dates: start: 2020, end: 2020
  5. LEVOTHYROXINE. [Concomitant]
     Active Substance: LEVOTHYROXINE
     Indication: PRODUCT USED FOR UNKNOWN INDICATION
  6. DIGOXIN. [Concomitant]
     Active Substance: DIGOXIN
     Indication: PRODUCT USED FOR UNKNOWN INDICATION
  7. LACTULOSE. [Concomitant]
     Active Substance: LACTULOSE
     Indication: PRODUCT USED FOR UNKNOWN INDICATION
     Dates: end: 2020
  8. XIFAXAN [Suspect]
     Active Substance: RIFAXIMIN
     Indication: HEPATIC ENCEPHALOPATHY
     Dosage: ON AND OFF
     Route: 048

REACTIONS (8)
  - Dehydration [Unknown]
  - Treatment noncompliance [Unknown]
  - Fluid retention [Unknown]
  - Ammonia increased [Unknown]
  - Portal vein thrombosis [Unknown]
  - Varices oesophageal [Unknown]
  - Inability to afford medication [Unknown]
  - Ascites [Unknown]

NARRATIVE: CASE EVENT DATE: 2020
